FAERS Safety Report 23819951 (Version 1)
Quarter: 2024Q2

REPORT INFORMATION
  Report Type: Spontaneous
  Country: US (occurrence: US)
  Receive Date: 20240506
  Receipt Date: 20240506
  Transmission Date: 20240715
  Serious: No
  Sender: FDA-Public Use
  Company Number: US-AMGEN-USASP2024087157

PATIENT
  Sex: Female

DRUGS (1)
  1. MVASI [Suspect]
     Active Substance: BEVACIZUMAB-AWWB
     Indication: Ovarian cancer
     Dosage: 1000 MILLIGRAM (400 MG X 2 AND 100 MG X 2)
     Route: 065

REACTIONS (2)
  - Nausea [Unknown]
  - Vomiting [Unknown]
